FAERS Safety Report 5286004-8 (Version None)
Quarter: 2007Q2

REPORT INFORMATION
  Report Type: 
  Country: None (occurrence: None)
  Receive Date: 20070404
  Receipt Date: 20070328
  Transmission Date: 20071010
  Serious: Yes (Death, Hospitalization)
  Sender: FDA-Public Use
  Company Number: PHFR2007GB01153

PATIENT

DRUGS (1)
  1. EXJADE [Suspect]

REACTIONS (2)
  - DEATH [None]
  - NEUTROPENIA [None]
